FAERS Safety Report 21837590 (Version 1)
Quarter: 2023Q1

REPORT INFORMATION
  Report Type: Spontaneous
  Country: GB (occurrence: GB)
  Receive Date: 20230109
  Receipt Date: 20230109
  Transmission Date: 20230418
  Serious: Yes (Disabling, Other)
  Sender: FDA-Public Use
  Company Number: None

PATIENT
  Age: 47 Year
  Sex: Female
  Weight: 83 kg

DRUGS (12)
  1. BUSPIRONE [Concomitant]
     Active Substance: BUSPIRONE HYDROCHLORIDE
     Indication: Product used for unknown indication
     Dates: start: 202209
  2. RABEPRAZOLE [Concomitant]
     Active Substance: RABEPRAZOLE
     Indication: Gastrooesophageal reflux disease
     Dates: start: 2017
  3. VENLAFAXINE HYDROCHLORIDE [Concomitant]
     Active Substance: VENLAFAXINE HYDROCHLORIDE
     Indication: Product used for unknown indication
     Dates: start: 19990803
  4. VENTOLIN [Concomitant]
     Active Substance: ALBUTEROL SULFATE
     Indication: Product used for unknown indication
     Dates: start: 2017
  5. IRON ISOMALTOSIDE 1000 [Suspect]
     Active Substance: IRON ISOMALTOSIDE 1000
     Indication: Deficiency anaemia
     Route: 050
     Dates: start: 20221219, end: 20221219
  6. INCRUSE ELLIPTA [Concomitant]
     Active Substance: UMECLIDINIUM BROMIDE
     Dates: start: 2017
  7. CETIRIZINE [Concomitant]
     Active Substance: CETIRIZINE HYDROCHLORIDE
     Indication: Product used for unknown indication
     Dates: start: 1999
  8. FLUTICASONE FUROATE\VILANTEROL TRIFENATATE [Concomitant]
     Active Substance: FLUTICASONE FUROATE\VILANTEROL TRIFENATATE
     Indication: Product used for unknown indication
     Dates: start: 2018
  9. DIAZEPAM [Concomitant]
     Active Substance: DIAZEPAM
     Indication: Product used for unknown indication
     Dates: start: 1992
  10. CALCIUM CARBONATE\CHOLECALCIFEROL [Concomitant]
     Active Substance: CALCIUM CARBONATE\CHOLECALCIFEROL
     Indication: Product used for unknown indication
     Dates: start: 2021
  11. SENNA LEAF [Concomitant]
     Active Substance: SENNA LEAF
     Indication: Product used for unknown indication
     Dates: start: 2018
  12. MOVICOL [Concomitant]
     Active Substance: POLYETHYLENE GLYCOL 3350\POTASSIUM CHLORIDE\SODIUM BICARBONATE\SODIUM CHLORIDE
     Indication: Product used for unknown indication
     Dates: start: 2018

REACTIONS (6)
  - Skin hyperpigmentation [Recovered/Resolved]
  - Pyrexia [Recovered/Resolved]
  - Headache [Recovered/Resolved]
  - Anxiety [Recovered/Resolved]
  - Agitation [Recovered/Resolved]
  - Fatigue [Recovered/Resolved]

NARRATIVE: CASE EVENT DATE: 20221220
